FAERS Safety Report 18504563 (Version 1)
Quarter: 2020Q4

REPORT INFORMATION
  Report Type: Other
  Country: CN (occurrence: CN)
  Receive Date: 20201114
  Receipt Date: 20201114
  Transmission Date: 20210114
  Serious: Yes (Other)
  Sender: FDA-Public Use
  Company Number: CN-ROCHE-2710897

PATIENT

DRUGS (1)
  1. TRASTUZUMAB. [Suspect]
     Active Substance: TRASTUZUMAB
     Indication: HER2 POSITIVE BREAST CANCER
     Dosage: FIRST DOSE
     Route: 041

REACTIONS (4)
  - Dyspnoea [Unknown]
  - Angioedema [Unknown]
  - Vertigo [Unknown]
  - Rash [Unknown]
